FAERS Safety Report 6020802-8 (Version None)
Quarter: 2008Q4

REPORT INFORMATION
  Report Type: 
  Country: None (occurrence: None)
  Receive Date: 20081229
  Receipt Date: 20081218
  Transmission Date: 20090506
  Serious: Yes (Other)
  Sender: FDA-Public Use
  Company Number: AU-JNJFOC-20081205373

PATIENT
  Sex: Female

DRUGS (3)
  1. REMICADE [Suspect]
     Route: 042
  2. REMICADE [Suspect]
     Indication: CROHN'S DISEASE
     Dosage: 3 INFUSIONS APPROXIMATELY 2 YEARS AGO
     Route: 042
  3. IMMUNOSUPPRESSANT [Concomitant]

REACTIONS (2)
  - SERUM SICKNESS [None]
  - SURGERY [None]
